FAERS Safety Report 11285007 (Version 3)
Quarter: 2015Q3

REPORT INFORMATION
  Report Type: Spontaneous
  Country: JP (occurrence: JP)
  Receive Date: 20150720
  Receipt Date: 20150902
  Transmission Date: 20151125
  Serious: Yes (Hospitalization)
  Sender: FDA-Public Use
  Company Number: JP-MUNDIPHARMA DS AND PHARMACOVIGILANCE-GBR-2015-0029564

PATIENT
  Age: 83 Year
  Sex: Male

DRUGS (14)
  1. HALCION [Concomitant]
     Active Substance: TRIAZOLAM
     Dosage: 0.25 MG, DAILY
     Route: 048
     Dates: start: 20150618
  2. NORSPAN [Suspect]
     Active Substance: BUPRENORPHINE
     Indication: SPINAL COLUMN STENOSIS
     Dosage: 1.67 MCG, Q1H
     Route: 062
  3. NORSPAN [Suspect]
     Active Substance: BUPRENORPHINE
     Dosage: 1.25 MCG, Q1H
     Route: 062
  4. NORSPAN [Suspect]
     Active Substance: BUPRENORPHINE
     Dosage: 5 MCG, Q1H
     Route: 062
     Dates: start: 20150622, end: 20150707
  5. VOLTAREN [Concomitant]
     Active Substance: DICLOFENAC SODIUM
     Route: 054
  6. NORSPAN [Suspect]
     Active Substance: BUPRENORPHINE
     Dosage: 2.5 MCG, Q1H
     Route: 062
  7. NAUZELIN [Concomitant]
     Active Substance: DOMPERIDONE
     Dosage: 20 MG, DAILY
     Route: 048
     Dates: start: 20150618
  8. LOXONIN [Concomitant]
     Active Substance: LOXOPROFEN SODIUM
     Dosage: UNK
     Route: 061
     Dates: start: 20150629
  9. SELBEX [Concomitant]
     Active Substance: TEPRENONE
     Dosage: 100 MG, DAILY
     Route: 048
     Dates: start: 20150618
  10. NAUZELIN [Concomitant]
     Active Substance: DOMPERIDONE
     Dosage: 30 MG, DAILY
     Route: 048
     Dates: start: 20150622
  11. DEPAS [Concomitant]
     Active Substance: ETIZOLAM
     Dosage: 1 MG, DAILY
     Route: 048
     Dates: start: 20150618
  12. LYRICA [Concomitant]
     Active Substance: PREGABALIN
     Dosage: 150 MG, DAILY
     Route: 048
     Dates: start: 20150618
  13. PURSENNID                          /00571902/ [Concomitant]
     Active Substance: SENNOSIDES A AND B
     Dosage: 24 MG, QD PRN
     Route: 048
     Dates: start: 20150622, end: 20150629
  14. MAGNESIUM OXIDE. [Concomitant]
     Active Substance: MAGNESIUM OXIDE
     Dosage: 1320 MG, DAILY
     Route: 048
     Dates: start: 20150618

REACTIONS (7)
  - Constipation [Recovered/Resolved]
  - Hallucination [Recovered/Resolved]
  - Hallucination [Recovering/Resolving]
  - Wrong technique in product usage process [Unknown]
  - Pneumonia [Not Recovered/Not Resolved]
  - Decreased appetite [Unknown]
  - Somnolence [Unknown]

NARRATIVE: CASE EVENT DATE: 20150629
